FAERS Safety Report 21731459 (Version 1)
Quarter: 2022Q4

REPORT INFORMATION
  Report Type: Spontaneous
  Country: US (occurrence: US)
  Receive Date: 20221215
  Receipt Date: 20221215
  Transmission Date: 20230112
  Serious: Yes (Hospitalization, Other)
  Sender: FDA-Public Use
  Company Number: US-SNT-000316

PATIENT
  Age: 39 Year
  Sex: Female

DRUGS (3)
  1. BUPROPION [Suspect]
     Active Substance: BUPROPION
     Indication: Depression
     Route: 065
  2. DESVENLAFAXINE [Suspect]
     Active Substance: DESVENLAFAXINE
     Indication: Product used for unknown indication
     Route: 065
  3. CLONIDINE [Concomitant]
     Active Substance: CLONIDINE
     Indication: Product used for unknown indication
     Route: 065

REACTIONS (4)
  - Condition aggravated [Unknown]
  - Sympathomimetic effect [Unknown]
  - Haemorrhage intracranial [Unknown]
  - Flushing [Unknown]
